FAERS Safety Report 6438205-0 (Version None)
Quarter: 2009Q4

REPORT INFORMATION
  Report Type: 
  Country: None (occurrence: None)
  Receive Date: 20091109
  Receipt Date: 20091104
  Transmission Date: 20100525
  Serious: Yes (Other)
  Sender: FDA-Public Use
  Company Number: 2009SP034371

PATIENT
  Age: 59 Year
  Sex: Male

DRUGS (2)
  1. RIBAVIRIN [Suspect]
     Indication: HEPATITIS C
     Dosage: 600 MG;QD;PO
     Route: 048
     Dates: start: 20090318
  2. PEGASYS [Suspect]
     Indication: HEPATITIS C
     Dosage: 180 MCG; SC
     Route: 058
     Dates: start: 20090318

REACTIONS (1)
  - FACIAL PALSY [None]
